FAERS Safety Report 21877490 (Version 1)
Quarter: 2023Q1

REPORT INFORMATION
  Report Type: Spontaneous
  Country: US (occurrence: None)
  Receive Date: 20230116
  Receipt Date: 20230116
  Transmission Date: 20230417
  Serious: No
  Sender: FDA-Public Use
  Company Number: None

PATIENT
  Age: 91 Year
  Sex: Female
  Weight: 47.63 kg

DRUGS (8)
  1. INLYTA [Suspect]
     Active Substance: AXITINIB
     Indication: Renal cancer
     Dosage: FREQUENCY : TWICE A DAY;?
     Route: 048
     Dates: start: 202212, end: 20230116
  2. ATROPINE [Concomitant]
     Active Substance: ATROPINE
  3. CIPROFLOXACIN [Concomitant]
     Active Substance: CIPROFLOXACIN
  4. DEXTROMETHORPHAN-GUAIFENESIN ORAL S [Concomitant]
  5. ELIQUIS [Concomitant]
     Active Substance: APIXABAN
  6. GLUCERNA [Concomitant]
     Active Substance: AMINO ACIDS\DEXTROSE\ELECTROLYTES NOS\SOYBEAN OIL\VITAMINS
  7. TYLENOL [Concomitant]
     Active Substance: ACETAMINOPHEN
  8. ZADITOR [Concomitant]
     Active Substance: KETOTIFEN FUMARATE

REACTIONS (2)
  - Hospice care [None]
  - Therapy cessation [None]
